FAERS Safety Report 11881006 (Version 2)
Quarter: 2016Q1

REPORT INFORMATION
  Report Type: Spontaneous
  Country: US (occurrence: US)
  Receive Date: 20151230
  Receipt Date: 20160217
  Transmission Date: 20160526
  Serious: Yes (Hospitalization, Other)
  Sender: FDA-Public Use
  Company Number: US-ALEXION PHARMACEUTICALS INC-A201505379

PATIENT
  Age: 19 Year
  Sex: Female

DRUGS (4)
  1. SOLIRIS [Suspect]
     Active Substance: ECULIZUMAB
     Indication: HAEMOLYTIC URAEMIC SYNDROME
     Dosage: 900 MG, QW
     Route: 042
  2. SOLIRIS [Suspect]
     Active Substance: ECULIZUMAB
     Dosage: 1200 MG, QW
     Route: 042
     Dates: start: 20160209
  3. SOLIRIS [Suspect]
     Active Substance: ECULIZUMAB
     Dosage: 600 MG, UNK
     Route: 042
  4. SOLIRIS [Suspect]
     Active Substance: ECULIZUMAB
     Dosage: 900 MG, SINGLE
     Route: 042
     Dates: start: 20160208, end: 20160208

REACTIONS (8)
  - Inappropriate schedule of drug administration [Unknown]
  - Renal failure [Not Recovered/Not Resolved]
  - Cardiac failure [Not Recovered/Not Resolved]
  - Blood creatinine increased [Not Recovered/Not Resolved]
  - Platelet count decreased [Not Recovered/Not Resolved]
  - Cardiomyopathy [Not Recovered/Not Resolved]
  - Seizure [Not Recovered/Not Resolved]
  - Blood lactate dehydrogenase increased [Not Recovered/Not Resolved]
